FAERS Safety Report 21768518 (Version 1)
Quarter: 2022Q4

REPORT INFORMATION
  Report Type: Spontaneous
  Country: DE (occurrence: DE)
  Receive Date: 20221222
  Receipt Date: 20221222
  Transmission Date: 20230113
  Serious: Yes (Death)
  Sender: FDA-Public Use
  Company Number: DE-TEVA-2022-DE-2838394

PATIENT

DRUGS (6)
  1. CARBOPLATIN [Suspect]
     Active Substance: CARBOPLATIN
     Indication: Pleuropulmonary blastoma
     Dosage: SECOND-LINE CHEMOTHERAPY- ICE REGIMEN
     Route: 065
  2. CARBOPLATIN [Suspect]
     Active Substance: CARBOPLATIN
     Indication: Disease recurrence
  3. ETOPOSIDE [Suspect]
     Active Substance: ETOPOSIDE
     Indication: Pleuropulmonary blastoma
     Dosage: SECOND-LINE CHEMOTHERAPY- ICE REGIMEN
     Route: 065
  4. ETOPOSIDE [Suspect]
     Active Substance: ETOPOSIDE
     Indication: Disease recurrence
  5. IFOSFAMIDE [Suspect]
     Active Substance: IFOSFAMIDE
     Indication: Pleuropulmonary blastoma
     Dosage: SECOND-LINE CHEMOTHERAPY- ICE REGIMEN
     Route: 065
  6. IFOSFAMIDE [Suspect]
     Active Substance: IFOSFAMIDE
     Indication: Disease recurrence

REACTIONS (1)
  - Drug ineffective [Fatal]
